FAERS Safety Report 17792524 (Version 2)
Quarter: 2020Q2

REPORT INFORMATION
  Report Type: Report from Study
  Country: US (occurrence: US)
  Receive Date: 20200515
  Receipt Date: 20200529
  Transmission Date: 20200714
  Serious: Yes (Hospitalization, Other)
  Sender: FDA-Public Use
  Company Number: US-SHIRE-US202015088

PATIENT
  Age: 59 Year
  Sex: Male

DRUGS (3)
  1. GATTEX [Suspect]
     Active Substance: TEDUGLUTIDE\WATER
     Dosage: 5.51 MILLIGRAM, 1X/DAY:QD
     Route: 058
     Dates: start: 20181109
  2. GATTEX [Suspect]
     Active Substance: TEDUGLUTIDE\WATER
     Indication: SHORT-BOWEL SYNDROME
     Dosage: 0.551 UNK
     Route: 058
     Dates: start: 20180405
  3. GATTEX [Suspect]
     Active Substance: TEDUGLUTIDE\WATER
     Dosage: 0.551 MILLILITER, 1X/DAY:QD
     Route: 058
     Dates: start: 201811, end: 202005

REACTIONS (3)
  - Gallbladder enlargement [Unknown]
  - Cholelithiasis [Unknown]
  - Gallbladder disorder [Unknown]

NARRATIVE: CASE EVENT DATE: 202004
